FAERS Safety Report 21668625 (Version 1)
Quarter: 2022Q4

REPORT INFORMATION
  Report Type: Spontaneous
  Country: US (occurrence: None)
  Receive Date: 20221130
  Receipt Date: 20221130
  Transmission Date: 20230113
  Serious: Yes (Other)
  Sender: FDA-Public Use
  Company Number: None

PATIENT
  Sex: Male

DRUGS (2)
  1. ABIRATERONE [Suspect]
     Active Substance: ABIRATERONE
     Dosage: FREQUENCY : DAILY;?
     Route: 048
  2. ZOLADEX [Suspect]
     Active Substance: GOSERELIN ACETATE

REACTIONS (3)
  - Seizure [None]
  - Syncope [None]
  - Hot flush [None]
